FAERS Safety Report 8875742 (Version 1)
Quarter: 2012Q4

REPORT INFORMATION
  Report Type: 
  Country: BR (occurrence: BR)
  Receive Date: 20121030
  Receipt Date: 20121030
  Transmission Date: 20130627
  Serious: Yes (Death, Hospitalization, Other)
  Sender: FDA-Public Use
  Company Number: PHHY2012BR096902

PATIENT
  Sex: Female

DRUGS (2)
  1. FORASEQ [Suspect]
     Indication: FATIGUE
     Dosage: 100 ug, BID
  2. ANOPRIL [Concomitant]
     Indication: HYPERTENSION
     Dosage: 1 DF, QD
     Route: 048

REACTIONS (5)
  - Septic shock [Fatal]
  - Diabetes mellitus [Not Recovered/Not Resolved]
  - Blood pressure [Recovered/Resolved]
  - Pulmonary oedema [Not Recovered/Not Resolved]
  - Oxygen saturation decreased [Unknown]
